FAERS Safety Report 16709995 (Version 2)
Quarter: 2019Q3

REPORT INFORMATION
  Report Type: Report from Study
  Country: None (occurrence: CA)
  Receive Date: 20190816
  Receipt Date: 20190904
  Transmission Date: 20191004
  Serious: Yes (Hospitalization)
  Sender: FDA-Public Use
  Company Number: CA-ABBVIE-19K-028-2889550-00

PATIENT
  Age: 80 Year
  Sex: Male
  Weight: 62 kg

DRUGS (1)
  1. DUODOPA [Suspect]
     Active Substance: CARBIDOPA\LEVODOPA
     Indication: PARKINSON^S DISEASE
     Route: 050
     Dates: start: 20170510

REACTIONS (6)
  - Mobility decreased [Recovered/Resolved]
  - Pain [Unknown]
  - On and off phenomenon [Unknown]
  - Device issue [Unknown]
  - Speech disorder [Recovered/Resolved]
  - Device dislocation [Unknown]

NARRATIVE: CASE EVENT DATE: 20190811
